FAERS Safety Report 15396056 (Version 1)
Quarter: 2018Q3

REPORT INFORMATION
  Report Type: Spontaneous
  Country: TH (occurrence: TH)
  Receive Date: 20180918
  Receipt Date: 20180918
  Transmission Date: 20181010
  Serious: Yes (Other)
  Sender: FDA-Public Use
  Company Number: TH-CORDEN PHARMA LATINA S.P.A.-TH-2018COR000099

PATIENT
  Sex: Male

DRUGS (3)
  1. BLEOMYCIN [Concomitant]
     Active Substance: BLEOMYCIN SULFATE
     Indication: GERM CELL CANCER
     Dosage: 15 UNITS/M2 DAY 1 (6 CYCLES)
     Route: 041
  2. ETOPOSIDE. [Suspect]
     Active Substance: ETOPOSIDE
     Indication: GERM CELL CANCER
     Dosage: 100 MG/M;  DAY 1 TO 5 (6 CYCLES)
     Route: 041
  3. CISPLATIN. [Concomitant]
     Active Substance: CISPLATIN
     Indication: GERM CELL CANCER
     Dosage: 20 MG/M2, UNK, DAY 1 TO 5 (6 CYCLES)
     Route: 041

REACTIONS (1)
  - Acute myeloid leukaemia [Unknown]
